FAERS Safety Report 15647315 (Version 2)
Quarter: 2019Q2

REPORT INFORMATION
  Report Type: Spontaneous
  Country: SI (occurrence: SI)
  Receive Date: 20181122
  Receipt Date: 20190516
  Transmission Date: 20190711
  Serious: Yes (Other)
  Sender: FDA-Public Use
  Company Number: SI-AMGEN-SVNSP2018165406

PATIENT
  Age: 11 Year
  Sex: Male

DRUGS (1)
  1. BLINCYTO [Suspect]
     Active Substance: BLINATUMOMAB
     Indication: ACUTE LYMPHOCYTIC LEUKAEMIA RECURRENT
     Dosage: UNK
     Route: 065

REACTIONS (4)
  - Acute lymphocytic leukaemia refractory [Unknown]
  - Thrombocytopenia [Unknown]
  - Anaemia [Unknown]
  - Pyrexia [Unknown]
